FAERS Safety Report 10348120 (Version 1)
Quarter: 2014Q3

REPORT INFORMATION
  Report Type: Spontaneous
  Country: US (occurrence: US)
  Receive Date: 20140729
  Receipt Date: 20140729
  Transmission Date: 20150326
  Serious: Yes (Other)
  Sender: FDA-Public Use
  Company Number: PHHY2014US091435

PATIENT
  Age: 43 Year
  Sex: Male

DRUGS (5)
  1. HYDROXYCHLOROQUINE [Suspect]
     Active Substance: HYDROXYCHLOROQUINE
     Indication: Q FEVER
     Dosage: 300 MG, DAILY
  2. HYDROXYCHLOROQUINE [Interacting]
     Active Substance: HYDROXYCHLOROQUINE
     Dosage: 200 MG, BID
  3. CIPROFLOXACIN. [Interacting]
     Active Substance: CIPROFLOXACIN
     Indication: Q FEVER
     Dosage: 750 MG, BID
  4. DOXYCYCLINE. [Suspect]
     Active Substance: DOXYCYCLINE
     Indication: Q FEVER
     Dosage: 100 MG, BID
  5. RIFAMPICIN [Interacting]
     Active Substance: RIFAMPIN
     Indication: Q FEVER
     Dosage: 600 MG, DAILY

REACTIONS (9)
  - Psychotic disorder [Recovered/Resolved]
  - Nausea [Unknown]
  - Vomiting [Unknown]
  - Drug interaction [Unknown]
  - Hallucination, visual [Recovered/Resolved]
  - Hallucination, tactile [Recovered/Resolved]
  - Hallucination, auditory [Recovered/Resolved]
  - Hepatic enzyme increased [Unknown]
  - Drug effect incomplete [Unknown]
